FAERS Safety Report 7530539-1 (Version None)
Quarter: 2011Q2

REPORT INFORMATION
  Report Type: 
  Country: None (occurrence: None)
  Receive Date: 20110607
  Receipt Date: 20110602
  Transmission Date: 20111010
  Serious: Yes (Other)
  Sender: FDA-Public Use
  Company Number: JP-SANOFI-AVENTIS-2011SA020232

PATIENT
  Sex: Male
  Weight: 82 kg

DRUGS (12)
  1. LANTUS [Concomitant]
     Indication: DIABETES MELLITUS
     Dosage: DOSE:6 UNIT(S)
     Route: 058
     Dates: start: 20090324, end: 20090530
  2. LANTUS [Concomitant]
     Dosage: DOSE:8 UNIT(S)
     Route: 058
     Dates: start: 20090809, end: 20100510
  3. AMLODIPINE BESYLATE [Concomitant]
     Indication: HYPERTENSION
     Route: 048
     Dates: start: 20090110
  4. MIGLITOL [Concomitant]
     Indication: DIABETES MELLITUS
     Route: 048
     Dates: start: 20090324, end: 20100510
  5. LANTUS [Concomitant]
     Dosage: DOSE:14 UNIT(S)
     Route: 058
     Dates: start: 20100831, end: 20100906
  6. APIDRA [Suspect]
     Indication: DIABETES MELLITUS
     Dosage: DOSE:4 UNIT(S)
     Route: 058
     Dates: start: 20100906, end: 20101225
  7. LANTUS [Concomitant]
     Dosage: DOSE:6 UNIT(S)
     Route: 058
     Dates: start: 20100511, end: 20100830
  8. VALSARTAN [Concomitant]
     Indication: HYPERTENSION
     Route: 048
     Dates: start: 20090110
  9. MITIGLINIDE [Concomitant]
     Indication: DIABETES MELLITUS
     Route: 048
     Dates: start: 20100830, end: 20100906
  10. NATEGLINIDE [Concomitant]
     Indication: DIABETES MELLITUS
     Route: 048
     Dates: start: 20100510, end: 20100830
  11. LANTUS [Concomitant]
     Dosage: DOSE:10 UNIT(S)
     Route: 058
     Dates: start: 20090531, end: 20090808
  12. LANTUS [Concomitant]
     Dosage: DOSE:6 UNIT(S)
     Route: 058
     Dates: start: 20100907, end: 20101225

REACTIONS (1)
  - PANCREATIC CARCINOMA [None]
